FAERS Safety Report 20049214 (Version 1)
Quarter: 2021Q4

REPORT INFORMATION
  Report Type: Spontaneous
  Country: BR (occurrence: BR)
  Receive Date: 20211109
  Receipt Date: 20211109
  Transmission Date: 20220303
  Serious: Yes (Hospitalization)
  Sender: FDA-Public Use
  Company Number: BR-NOVOPROD-861890

PATIENT
  Age: 31 Year
  Sex: Male
  Weight: 82.3 kg

DRUGS (10)
  1. METFORMIN [Concomitant]
     Active Substance: METFORMIN HYDROCHLORIDE
     Indication: Latent autoimmune diabetes in adults
     Dosage: 500 MG
     Route: 065
  2. METFORMIN [Concomitant]
     Active Substance: METFORMIN HYDROCHLORIDE
     Dosage: 1G
     Route: 065
  3. TRESIBA [Suspect]
     Active Substance: INSULIN DEGLUDEC
     Indication: Latent autoimmune diabetes in adults
     Dosage: 22 IU
     Route: 065
  4. TRESIBA [Suspect]
     Active Substance: INSULIN DEGLUDEC
     Dosage: 26 IU
     Route: 065
     Dates: start: 20210122
  5. TRESIBA [Suspect]
     Active Substance: INSULIN DEGLUDEC
     Dosage: 30 IU
     Route: 065
     Dates: start: 20210722
  6. NOVORAPID [Suspect]
     Active Substance: INSULIN ASPART
     Dosage: 9.9.0
     Route: 065
     Dates: start: 20210722
  7. NOVORAPID [Suspect]
     Active Substance: INSULIN ASPART
     Dosage: 9.9.0
     Route: 065
     Dates: start: 20210217
  8. NOVORAPID [Suspect]
     Active Substance: INSULIN ASPART
     Indication: Latent autoimmune diabetes in adults
     Dosage: 8 IU, BID (MORNING AND NIGHT )
     Route: 065
  9. NOVORAPID [Suspect]
     Active Substance: INSULIN ASPART
     Dosage: 8 IU, BID (BREAKFAST, LUNCH AND DINNER )
     Route: 065
     Dates: start: 20201103
  10. NOVORAPID [Suspect]
     Active Substance: INSULIN ASPART
     Dosage: 9.9.9
     Route: 065
     Dates: start: 20210122

REACTIONS (4)
  - Diabetic ketoacidosis [Unknown]
  - Blood glucose increased [Unknown]
  - COVID-19 [Unknown]
  - Weight increased [Unknown]

NARRATIVE: CASE EVENT DATE: 20210501
